FAERS Safety Report 15072399 (Version 2)
Quarter: 2018Q3

REPORT INFORMATION
  Report Type: Spontaneous
  Country: BR (occurrence: BR)
  Receive Date: 20180626
  Receipt Date: 20180821
  Transmission Date: 20181010
  Serious: Yes (Hospitalization, Other)
  Sender: FDA-Public Use
  Company Number: BR-ALEXION-A201807183

PATIENT
  Age: 37 Year
  Sex: Male

DRUGS (2)
  1. SOLIRIS [Suspect]
     Active Substance: ECULIZUMAB
     Indication: PAROXYSMAL NOCTURNAL HAEMOGLOBINURIA
     Dosage: 600 MG, QW
     Route: 042
     Dates: start: 20150317, end: 20150407
  2. SOLIRIS [Suspect]
     Active Substance: ECULIZUMAB
     Dosage: 900 MG, Q2W
     Route: 042
     Dates: start: 20150414

REACTIONS (13)
  - Pancreas infection [Unknown]
  - Intentional product use issue [Recovered/Resolved]
  - Cholecystitis [Unknown]
  - Abdominal distension [Unknown]
  - Ascites [Unknown]
  - Urinary tract infection [Unknown]
  - Oedema [Unknown]
  - Nephritis [Unknown]
  - Pyrexia [Unknown]
  - Cystitis escherichia [Unknown]
  - Haemoglobin decreased [Unknown]
  - Symptom recurrence [Unknown]
  - White blood cell count decreased [Unknown]

NARRATIVE: CASE EVENT DATE: 2017
